FAERS Safety Report 15963336 (Version 1)
Quarter: 2019Q1

REPORT INFORMATION
  Report Type: Spontaneous
  Country: CA (occurrence: CA)
  Receive Date: 20190214
  Receipt Date: 20190214
  Transmission Date: 20190417
  Serious: Yes (Other)
  Sender: FDA-Public Use
  Company Number: CA-TEVA-2019-CA-1012442

PATIENT
  Age: 85 Year
  Sex: Female

DRUGS (1)
  1. LACTULOSE SYRUP [Suspect]
     Active Substance: LACTULOSE
     Indication: AMMONIA
     Route: 065

REACTIONS (3)
  - Ammonia increased [Unknown]
  - Cognitive disorder [Unknown]
  - Prerenal failure [Unknown]
